FAERS Safety Report 20702114 (Version 2)
Quarter: 2022Q2

REPORT INFORMATION
  Report Type: Spontaneous
  Country: US (occurrence: US)
  Receive Date: 20220412
  Receipt Date: 20220512
  Transmission Date: 20220721
  Serious: Yes (Hospitalization)
  Sender: FDA-Public Use
  Company Number: US-BIOMARINAP-US-2022-142613

PATIENT
  Age: 26 Year
  Sex: Male
  Weight: 35 kg

DRUGS (1)
  1. NAGLAZYME [Suspect]
     Active Substance: GALSULFASE
     Indication: Product used for unknown indication
     Dosage: UNK, QW
     Route: 042

REACTIONS (3)
  - Neck surgery [Recovering/Resolving]
  - Complication associated with device [Recovering/Resolving]
  - Tracheal operation [Recovering/Resolving]

NARRATIVE: CASE EVENT DATE: 20220301
